FAERS Safety Report 8217901-9 (Version None)
Quarter: 2012Q1

REPORT INFORMATION
  Report Type: 
  Country: None (occurrence: None)
  Receive Date: 20120319
  Receipt Date: 20120309
  Transmission Date: 20120608
  Serious: Yes (Other)
  Sender: FDA-Public Use
  Company Number: US-BAYER-2012-023291

PATIENT
  Age: 42 Year
  Sex: Female

DRUGS (9)
  1. YASMIN [Suspect]
     Dosage: UNK
     Dates: start: 20090323, end: 20100203
  2. CELECOXIB [Concomitant]
     Indication: PAIN
     Dosage: 100 MG, ONCE
     Route: 048
  3. YAZ [Suspect]
     Indication: MENORRHAGIA
     Dosage: UNK UNK, QD
     Dates: start: 20090323, end: 20100203
  4. ACETAMINOPHEN AND HYDROCODONE BITARTRATE [Concomitant]
     Indication: PAIN
     Dosage: 5 MG, PRN
     Route: 048
  5. PROVERA [Concomitant]
     Indication: MENORRHAGIA
  6. DROSPIRENONE AND ETHINYL ESTRADIOL [Suspect]
     Dosage: UNK
     Dates: start: 20090323, end: 20100203
  7. AMBIEN [Concomitant]
     Dosage: 10 MG, HS
     Route: 048
  8. MIRENA [Concomitant]
     Indication: CONTRACEPTION
     Dosage: UNK
     Dates: start: 20090101
  9. IBUPROFEN [Concomitant]

REACTIONS (6)
  - INJURY [None]
  - DEEP VEIN THROMBOSIS [None]
  - GENERAL PHYSICAL HEALTH DETERIORATION [None]
  - ANXIETY [None]
  - PAIN [None]
  - EMOTIONAL DISTRESS [None]
